FAERS Safety Report 5096845-8 (Version None)
Quarter: 2006Q3

REPORT INFORMATION
  Report Type: 
  Country: None (occurrence: None)
  Receive Date: 20060901
  Receipt Date: 20060901
  Transmission Date: 20061208
  Serious: Yes (Hospitalization)
  Sender: FDA-Public Use
  Company Number: None

PATIENT
  Age: 9 Year
  Sex: Female
  Weight: 27.2158 kg

DRUGS (2)
  1. DEPAKENE [Suspect]
     Indication: CONVULSION
     Dosage: 1/2 TEASPOON 3 TIMES DAY
  2. LAMICTAL [Suspect]
     Indication: CONVULSION
     Dosage: 1/2 PILL MORNING 1 PILL NIGHT
     Dates: start: 20060529, end: 20060604

REACTIONS (1)
  - STEVENS-JOHNSON SYNDROME [None]
